FAERS Safety Report 15264473 (Version 1)
Quarter: 2018Q3

REPORT INFORMATION
  Report Type: Spontaneous
  Country: US (occurrence: US)
  Receive Date: 20180810
  Receipt Date: 20180810
  Transmission Date: 20181010
  Serious: No
  Sender: FDA-Public Use
  Company Number: US-BAYER-2018-146121

PATIENT
  Sex: Female

DRUGS (2)
  1. ALEVE [Suspect]
     Active Substance: NAPROXEN SODIUM
     Indication: INFLAMMATION
     Dosage: 2 DF, BID
     Route: 048
     Dates: start: 20180801
  2. ALEVE [Suspect]
     Active Substance: NAPROXEN SODIUM
     Indication: PAIN IN EXTREMITY

REACTIONS (3)
  - Product prescribing issue [Unknown]
  - Wrong technique in product usage process [Unknown]
  - Product use issue [Unknown]

NARRATIVE: CASE EVENT DATE: 201808
